FAERS Safety Report 13689231 (Version 2)
Quarter: 2017Q3

REPORT INFORMATION
  Report Type: Spontaneous
  Country: US (occurrence: US)
  Receive Date: 20170626
  Receipt Date: 20170706
  Transmission Date: 20171127
  Serious: Yes (Other)
  Sender: FDA-Public Use
  Company Number: US-PFIZER INC-2017270376

PATIENT
  Age: 29 Year
  Sex: Female

DRUGS (9)
  1. PHENOBARBITAL. [Concomitant]
     Active Substance: PHENOBARBITAL
     Indication: CROHN^S DISEASE
     Dosage: 15 MG, UNK
  2. SALAZOPYRIN [Suspect]
     Active Substance: SULFASALAZINE
     Indication: ABDOMINAL PAIN
  3. SALAZOPYRIN [Suspect]
     Active Substance: SULFASALAZINE
     Indication: CROHN^S DISEASE
  4. METHYLSCOPOLAMINE [Concomitant]
     Indication: CROHN^S DISEASE
     Dosage: 2.5 MG, 3X/DAY
  5. CHLORDIAZEPOXIDE HCL [Concomitant]
     Active Substance: CHLORDIAZEPOXIDE HYDROCHLORIDE
     Indication: ABDOMINAL PAIN
  6. BELLADONNA EXTRACT [Concomitant]
     Active Substance: BELLADONNA LEAF\HOMEOPATHICS
     Indication: CROHN^S DISEASE
     Dosage: 8 MG, 3X/DAY
  7. PHTHALYLSULFATHIAZOLE [Concomitant]
     Active Substance: PHTHALYLSULFATHIAZOLE
     Indication: CROHN^S DISEASE
     Dosage: 1 G, 4X/DAY
  8. CHLORDIAZEPOXIDE HCL [Concomitant]
     Active Substance: CHLORDIAZEPOXIDE HYDROCHLORIDE
     Indication: DIARRHOEA
     Dosage: 5.0 MG, 3X/DAY
  9. SALAZOPYRIN [Suspect]
     Active Substance: SULFASALAZINE
     Indication: DIARRHOEA
     Dosage: 1 G, 4X/DAY

REACTIONS (1)
  - Pancreatitis acute [Recovered/Resolved]
